FAERS Safety Report 4579744-7 (Version None)
Quarter: 2005Q1

REPORT INFORMATION
  Report Type: 
  Country: None (occurrence: None)
  Receive Date: 20050210
  Receipt Date: 20050210
  Transmission Date: 20050727
  Serious: No
  Sender: FDA-Public Use
  Company Number: None

PATIENT
  Age: 88 Year
  Sex: Male
  Weight: 80 kg

DRUGS (12)
  1. ZYVOX [Suspect]
     Indication: URINARY TRACT INFECTION STAPHYLOCOCCAL
     Dosage: 600MG BID ORAL
     Route: 048
     Dates: start: 20050118, end: 20050209
  2. ASPIRIN [Concomitant]
  3. FINASTERIDE [Concomitant]
  4. FLUPHENAZINE DECANOATE [Concomitant]
  5. GLYBURIDE [Concomitant]
  6. HYDROCHLOROTHIAZIDE [Concomitant]
  7. LISINOPRIL [Concomitant]
  8. MAGNESIUM OXIDE [Concomitant]
  9. NIFEDIPINE [Concomitant]
  10. TERAZOSIN [Concomitant]
  11. RISPERIDONE [Concomitant]
  12. TIMOLOL MALEATE [Concomitant]

REACTIONS (1)
  - ANAEMIA [None]
